FAERS Safety Report 21237265 (Version 2)
Quarter: 2022Q3

REPORT INFORMATION
  Report Type: Spontaneous
  Country: GB (occurrence: GB)
  Receive Date: 20220822
  Receipt Date: 20220830
  Transmission Date: 20221027
  Serious: Yes (Hospitalization, Other)
  Sender: FDA-Public Use
  Company Number: GB-TAKEDA-GB202034134

PATIENT
  Sex: Female

DRUGS (1)
  1. CUVITRU [Suspect]
     Active Substance: HUMAN IMMUNOGLOBULIN G
     Indication: Immunology test
     Dosage: 12 GRAM, 1/WEEK
     Route: 050
     Dates: start: 202112

REACTIONS (2)
  - Knee arthroplasty [Unknown]
  - Hospitalisation [Unknown]
